FAERS Safety Report 25275884 (Version 1)
Quarter: 2025Q2

REPORT INFORMATION
  Report Type: Spontaneous
  Country: US (occurrence: US)
  Receive Date: 20250507
  Receipt Date: 20250507
  Transmission Date: 20250716
  Serious: No
  Sender: CIPLA
  Company Number: US-CIPLA LTD.-2024US09336

PATIENT

DRUGS (3)
  1. TOPIRAMATE [Suspect]
     Active Substance: TOPIRAMATE
     Indication: Migraine
     Route: 065
     Dates: start: 202401
  2. TOPIRAMATE [Suspect]
     Active Substance: TOPIRAMATE
     Dosage: BOTTLE 1: 2 TABLETS, BID
     Route: 065
     Dates: start: 202406
  3. TOPIRAMATE [Suspect]
     Active Substance: TOPIRAMATE
     Dosage: BOTTLE 2: 2 TABLETS, BID
     Route: 065
     Dates: start: 202406

REACTIONS (4)
  - Migraine [Recovered/Resolved]
  - Product dose omission issue [Unknown]
  - Product storage error [Unknown]
  - Product physical issue [Unknown]

NARRATIVE: CASE EVENT DATE: 20240101
